FAERS Safety Report 5121989-1 (Version None)
Quarter: 2006Q4

REPORT INFORMATION
  Report Type: 
  Country: None (occurrence: None)
  Receive Date: 20061003
  Receipt Date: 20060920
  Transmission Date: 20070319
  Serious: Yes (Other)
  Sender: FDA-Public Use
  Company Number: 2006114471

PATIENT
  Sex: Male

DRUGS (2)
  1. CELEBREX [Suspect]
  2. BEXTRA [Suspect]

REACTIONS (2)
  - CARDIAC DISORDER [None]
  - INJURY [None]
